FAERS Safety Report 25348905 (Version 2)
Quarter: 2025Q4

REPORT INFORMATION
  Report Type: Spontaneous
  Country: US (occurrence: US)
  Receive Date: 20250522
  Receipt Date: 20251224
  Transmission Date: 20260118
  Serious: Yes (Other)
  Sender: COOPERSURGICAL
  Company Number: US-COOPERSURGICAL, INC.-2025CPS004049

PATIENT
  Age: 42 Year
  Sex: Female
  Weight: 66.667 kg

DRUGS (2)
  1. PARAGARD T 380A [Suspect]
     Active Substance: COPPER
     Indication: Contraception
     Dosage: UNK
     Route: 015
     Dates: start: 20121017, end: 20190221
  2. ZOLOFT [Concomitant]
     Active Substance: SERTRALINE HYDROCHLORIDE
     Dosage: UNK
     Dates: start: 201004, end: 202211

REACTIONS (18)
  - Surgery [Recovered/Resolved]
  - Endometrial ablation [Recovered/Resolved]
  - Device breakage [Recovered/Resolved]
  - Foreign body in reproductive tract [Recovered/Resolved]
  - Complication of device removal [Recovered/Resolved]
  - Embedded device [Recovered/Resolved]
  - Endometritis [Unknown]
  - Depression [Unknown]
  - Vulvovaginal discomfort [Unknown]
  - Procedural pain [Recovered/Resolved]
  - Emotional distress [Unknown]
  - Patient-device incompatibility [Recovered/Resolved]
  - Vulvovaginal mycotic infection [Unknown]
  - Vaginal discharge [Unknown]
  - Abnormal uterine bleeding [Unknown]
  - Pain [Unknown]
  - Device expulsion [Recovered/Resolved]
  - Heavy menstrual bleeding [Unknown]

NARRATIVE: CASE EVENT DATE: 20181113
